FAERS Safety Report 9970443 (Version 1)
Quarter: 2014Q1

REPORT INFORMATION
  Report Type: Spontaneous
  Country: US (occurrence: None)
  Receive Date: 20140131
  Receipt Date: 20140131
  Transmission Date: 20141002
  Serious: Yes (Other)
  Sender: FDA-Public Use
  Company Number: US-DEXPHARM-20121769

PATIENT
  Age: 15 Year
  Sex: Male

DRUGS (2)
  1. OMEPRAZOLE [Suspect]
  2. METHOTREXATE [Suspect]
     Dosage: TIMES IN CYCLICAL

REACTIONS (1)
  - Drug interaction [None]
